FAERS Safety Report 6434489-3 (Version None)
Quarter: 2009Q4

REPORT INFORMATION
  Report Type: 
  Country: None (occurrence: None)
  Receive Date: 20091110
  Receipt Date: 20091029
  Transmission Date: 20100525
  Serious: Yes (Hospitalization, Disabling)
  Sender: FDA-Public Use
  Company Number: DE-PFIZER INC-2009291021

PATIENT
  Age: 35 Year
  Sex: Male
  Weight: 60.7 kg

DRUGS (1)
  1. SOMATROPIN [Suspect]
     Indication: GROWTH HORMONE DEFICIENCY
     Dosage: 0.4 MG, 1X/DAY
     Route: 058
     Dates: start: 19960509

REACTIONS (3)
  - LORDOSIS [None]
  - SCOLIOSIS [None]
  - SLEEP APNOEA SYNDROME [None]
